FAERS Safety Report 14227067 (Version 2)
Quarter: 2017Q4

REPORT INFORMATION
  Report Type: Spontaneous
  Country: US (occurrence: US)
  Receive Date: 20171127
  Receipt Date: 20171130
  Transmission Date: 20180321
  Serious: Yes (Other)
  Sender: FDA-Public Use
  Company Number: US-PFIZER INC-2017508476

PATIENT
  Age: 80 Year
  Sex: Female

DRUGS (1)
  1. CEFTRIAXONE SODIUM. [Suspect]
     Active Substance: CEFTRIAXONE SODIUM
     Indication: METASTASES TO MENINGES
     Dosage: 2 G, UNK
     Route: 042

REACTIONS (3)
  - Pyrexia [Recovering/Resolving]
  - Hypotension [Recovering/Resolving]
  - Jarisch-Herxheimer reaction [Recovering/Resolving]
